FAERS Safety Report 15754370 (Version 1)
Quarter: 2018Q4

REPORT INFORMATION
  Report Type: Spontaneous
  Country: JP (occurrence: JP)
  Receive Date: 20181224
  Receipt Date: 20181224
  Transmission Date: 20190205
  Serious: Yes (Other)
  Sender: FDA-Public Use
  Company Number: JP-ABBVIE-18K-087-2599333-00

PATIENT
  Age: 77 Year
  Sex: Female

DRUGS (1)
  1. MAVIRET [Suspect]
     Active Substance: GLECAPREVIR\PIBRENTASVIR
     Indication: PRODUCT USED FOR UNKNOWN INDICATION
     Route: 048
     Dates: start: 20180115, end: 20180322

REACTIONS (3)
  - Gastrointestinal haemorrhage [Unknown]
  - Hepatitis C [Unknown]
  - Haematochezia [Unknown]

NARRATIVE: CASE EVENT DATE: 2018
